FAERS Safety Report 6749304-8 (Version None)
Quarter: 2010Q2

REPORT INFORMATION
  Report Type: 
  Country: None (occurrence: None)
  Receive Date: 20100601
  Receipt Date: 20100517
  Transmission Date: 20101027
  Serious: Yes (Other)
  Sender: FDA-Public Use
  Company Number: US-ASTRAZENECA-2009SE17233

PATIENT
  Age: 11506 Day
  Sex: Female
  Weight: 93.4 kg

DRUGS (5)
  1. SEROQUEL [Suspect]
     Route: 048
  2. SINGULAIR [Concomitant]
     Indication: ASTHMA
  3. SKELAXIN [Concomitant]
     Indication: MUSCLE SPASMS
     Dates: start: 20040503
  4. CEFUROXIME AXETIL [Concomitant]
     Dates: start: 20040505
  5. ZYPREXA [Concomitant]
     Indication: AGITATION
     Dosage: 2.5MG ONE AT SUPPER
     Dates: start: 20040525

REACTIONS (2)
  - DIABETES MELLITUS [None]
  - NEUROPATHY PERIPHERAL [None]
